FAERS Safety Report 18229378 (Version 2)
Quarter: 2020Q3

REPORT INFORMATION
  Report Type: Spontaneous
  Country: US (occurrence: US)
  Receive Date: 20200903
  Receipt Date: 20200924
  Transmission Date: 20201103
  Serious: Yes (Other)
  Sender: FDA-Public Use
  Company Number: US-UPSHER-SMITH LABORATORIES, LLC-2020USL00470

PATIENT
  Age: 80 Year
  Sex: Female
  Weight: 92.9 kg

DRUGS (15)
  1. MEXILETINE [Concomitant]
     Active Substance: MEXILETINE
  2. ALLOPURINOL. [Concomitant]
     Active Substance: ALLOPURINOL
  3. ELIQUIS [Concomitant]
     Active Substance: APIXABAN
  4. ROPINIROLE. [Concomitant]
     Active Substance: ROPINIROLE
  5. POTASSIUM CHLORIDE MICRO?DISPERSIBLE [Suspect]
     Active Substance: POTASSIUM CHLORIDE
     Indication: HYPOKALAEMIA
     Dosage: 40 MEQ, EVERY 4 HOURS
     Route: 048
     Dates: start: 20200628, end: 2020
  6. FERROUS SULFATE. [Concomitant]
     Active Substance: FERROUS SULFATE
  7. L?THYROXINE [Concomitant]
     Active Substance: LEVOTHYROXINE
  8. LEVOFLOXACIN. [Concomitant]
     Active Substance: LEVOFLOXACIN
  9. PROTONIX [Concomitant]
     Active Substance: PANTOPRAZOLE SODIUM
  10. ATORVASTATIN [Concomitant]
     Active Substance: ATORVASTATIN
  11. FUROSEMIDE. [Concomitant]
     Active Substance: FUROSEMIDE
  12. GUAIFENESIN ER [Concomitant]
     Active Substance: GUAIFENESIN
  13. ALPRAZOLAM. [Concomitant]
     Active Substance: ALPRAZOLAM
  14. SILDENAFIL. [Concomitant]
     Active Substance: SILDENAFIL
  15. FLUOXETINE [Concomitant]
     Active Substance: FLUOXETINE HYDROCHLORIDE

REACTIONS (4)
  - Foreign body in gastrointestinal tract [Recovered/Resolved]
  - Gastric ulcer [Unknown]
  - Gingival ulceration [Unknown]
  - Choking [Recovered/Resolved]

NARRATIVE: CASE EVENT DATE: 20200706
